FAERS Safety Report 5481579-8 (Version None)
Quarter: 2007Q4

REPORT INFORMATION
  Report Type: 
  Country: None (occurrence: None)
  Receive Date: 20071010
  Receipt Date: 20070925
  Transmission Date: 20080405
  Serious: No
  Sender: FDA-Public Use
  Company Number: US-JNJFOC-20070905687

PATIENT
  Sex: Female

DRUGS (3)
  1. INVEGA [Suspect]
     Indication: BIPOLAR I DISORDER
     Dates: start: 20070807, end: 20070901
  2. CYMBALTA [Concomitant]
  3. LUNESTA [Concomitant]
     Dosage: TAKEN AT NIGHT

REACTIONS (1)
  - GALACTORRHOEA [None]
